FAERS Safety Report 25249589 (Version 1)
Quarter: 2025Q2

REPORT INFORMATION
  Report Type: Report from Study
  Country: AU (occurrence: AU)
  Receive Date: 20250429
  Receipt Date: 20250429
  Transmission Date: 20250717
  Serious: Yes (Hospitalization)
  Sender: UCB
  Company Number: AU-UCBSA-2025024343

PATIENT
  Age: 66 Year
  Sex: Female

DRUGS (1)
  1. CERTOLIZUMAB PEGOL [Suspect]
     Active Substance: CERTOLIZUMAB PEGOL
     Indication: Rheumatoid arthritis
     Dosage: 200 MILLIGRAM, EV 2 WEEKS(QOW)
     Route: 058
     Dates: start: 20240820

REACTIONS (2)
  - Lower respiratory tract infection [Recovered/Resolved]
  - Pleural effusion [Recovered/Resolved]

NARRATIVE: CASE EVENT DATE: 20250405
